FAERS Safety Report 7296351-6 (Version None)
Quarter: 2011Q1

REPORT INFORMATION
  Report Type: 
  Country: None (occurrence: None)
  Receive Date: 20110211
  Receipt Date: 20110211
  Transmission Date: 20110831
  Serious: Yes (Other)
  Sender: FDA-Public Use
  Company Number: None

PATIENT
  Age: 87 Year
  Sex: Male
  Weight: 83.0083 kg

DRUGS (1)
  1. MINOCYCLINE HCL [Suspect]
     Indication: ACNE
     Dosage: 100 MG CASULE 2 TIMES PER DAY PO
     Route: 048
     Dates: start: 20100812, end: 20100829

REACTIONS (5)
  - PYREXIA [None]
  - FEELING ABNORMAL [None]
  - VITREOUS FLOATERS [None]
  - PRODUCT QUALITY ISSUE [None]
  - CHILLS [None]
